FAERS Safety Report 10484500 (Version 1)
Quarter: 2014Q3

REPORT INFORMATION
  Report Type: Spontaneous
  Country: US (occurrence: US)
  Receive Date: 20140930
  Receipt Date: 20140930
  Transmission Date: 20150326
  Serious: Yes (Hospitalization, Other)
  Sender: FDA-Public Use
  Company Number: US-ELI_LILLY_AND_COMPANY-US201409008538

PATIENT
  Sex: Male

DRUGS (1)
  1. EFFIENT [Suspect]
     Active Substance: PRASUGREL HYDROCHLORIDE
     Indication: STENT PLACEMENT
     Route: 065

REACTIONS (7)
  - Headache [Recovered/Resolved]
  - Vision blurred [Unknown]
  - Fall [Recovered/Resolved]
  - Cataract [Unknown]
  - Syncope [Recovered/Resolved]
  - Dizziness [Recovered/Resolved]
  - Balance disorder [Unknown]
